FAERS Safety Report 4336502-6 (Version None)
Quarter: 2004Q2

REPORT INFORMATION
  Report Type: 
  Country: None (occurrence: None)
  Receive Date: 20040412
  Receipt Date: 20030923
  Transmission Date: 20050107
  Serious: Yes (Death)
  Sender: FDA-Public Use
  Company Number: 200413995GDDC

PATIENT
  Sex: 0

DRUGS (1)
  1. ENOXAPARIN SODIUM [Suspect]
     Indication: DEEP VEIN THROMBOSIS
     Dosage: DOSE: 1 MG/KG

REACTIONS (2)
  - CEREBRAL HAEMORRHAGE [None]
  - PULMONARY EMBOLISM [None]
